FAERS Safety Report 8865509 (Version 1)
Quarter: 2012Q4

REPORT INFORMATION
  Report Type: 
  Country: US (occurrence: US)
  Receive Date: 20121024
  Receipt Date: 20121024
  Transmission Date: 20130627
  Serious: No
  Sender: FDA-Public Use
  Company Number: US-AMGEN-USASP2012003269

PATIENT
  Age: 66 Year
  Sex: Female
  Weight: 43.54 kg

DRUGS (9)
  1. ENBREL [Suspect]
     Indication: PRODUCT USED FOR UNKNOWN INDICATION
     Dosage: 50 mg, qwk
     Route: 058
  2. PREDNISONE [Concomitant]
     Dosage: 1 mg, UNK
  3. FOSAMAX [Concomitant]
     Dosage: 70 mg, UNK
  4. BENICAR [Concomitant]
     Dosage: 20 mg, UNK
  5. AVINZA [Concomitant]
     Dosage: 120 mg, UNK
  6. DIGOXIN [Concomitant]
     Dosage: 0.25 mg, UNK
  7. ALLEGRA [Concomitant]
     Dosage: 180 mg, UNK
  8. OCUVITE                            /01053801/ [Concomitant]
     Dosage: UNK
  9. CALCIUM [Concomitant]
     Dosage: UNK

REACTIONS (3)
  - Sick relative [Unknown]
  - Nasopharyngitis [Unknown]
  - Influenza [Unknown]
